FAERS Safety Report 6598033-2 (Version None)
Quarter: 2010Q1

REPORT INFORMATION
  Report Type: 
  Country: None (occurrence: None)
  Receive Date: 20100216
  Receipt Date: 20100202
  Transmission Date: 20100710
  Serious: Yes (Other)
  Sender: FDA-Public Use
  Company Number: 2010AL000825

PATIENT
  Age: 71 Year
  Sex: Female

DRUGS (1)
  1. SERTRALINE HYDROCHLORIDE (AELLC) [Suspect]

REACTIONS (1)
  - LIVER DISORDER [None]
